FAERS Safety Report 10085929 (Version 1)
Quarter: 2014Q2

REPORT INFORMATION
  Report Type: Spontaneous
  Country: US (occurrence: US)
  Receive Date: 20140418
  Receipt Date: 20140418
  Transmission Date: 20141212
  Serious: No
  Sender: FDA-Public Use
  Company Number: US-BAYER-2014-057791

PATIENT
  Age: 68 Year
  Sex: Female

DRUGS (1)
  1. ALEVE CAPLET [Suspect]
     Dosage: UNK
     Dates: start: 2013, end: 2013

REACTIONS (1)
  - Dyspepsia [Recovered/Resolved]
